FAERS Safety Report 16672554 (Version 1)
Quarter: 2019Q3

REPORT INFORMATION
  Report Type: Spontaneous
  Country: BE (occurrence: BE)
  Receive Date: 20190806
  Receipt Date: 20190806
  Transmission Date: 20191004
  Serious: Yes (Hospitalization)
  Sender: FDA-Public Use
  Company Number: BE-PFIZER INC-2019330864

PATIENT
  Age: 59 Year
  Sex: Male

DRUGS (7)
  1. PROMETHAZINE [Concomitant]
     Active Substance: PROMETHAZINE HYDROCHLORIDE
     Indication: PREMEDICATION
     Dosage: 50 MG, UNK
     Route: 030
  2. PACLITAXEL. [Suspect]
     Active Substance: PACLITAXEL
     Dosage: 25 MG/M2, CYCLIC (IN 1 HR)
     Route: 042
  3. PACLITAXEL. [Suspect]
     Active Substance: PACLITAXEL
     Indication: NON-SMALL CELL LUNG CANCER
     Dosage: 200 MG/M2, CYCLIC (IN 3 H)
     Route: 042
  4. DEXAMETHASONE. [Concomitant]
     Active Substance: DEXAMETHASONE
     Indication: PREMEDICATION
     Dosage: 20 MG, UNK ( 12H AND 6 H BEFORE TREATMENT)
     Route: 048
  5. RANITIDINE. [Concomitant]
     Active Substance: RANITIDINE
     Indication: PREMEDICATION
     Dosage: 50 MG, UNK (30 MIN BEFORE EACH TREATMENT.)
     Route: 042
  6. CARBOPLATIN. [Suspect]
     Active Substance: CARBOPLATIN
     Dosage: 50 MG/M2, CYCLIC (ON THE 1ST AND 3RD DAYS OF EACH WEEK)
     Route: 040
  7. CARBOPLATIN. [Suspect]
     Active Substance: CARBOPLATIN
     Indication: NON-SMALL CELL LUNG CANCER
     Dosage: EVERY 3 WEEKS (TOTAL DOSE OF 650 MG I.V. IN 2 H EVERY 3 WEEKS)
     Route: 042

REACTIONS (1)
  - Pulmonary fibrosis [Recovering/Resolving]
